FAERS Safety Report 4553092-3 (Version None)
Quarter: 2005Q1

REPORT INFORMATION
  Report Type: 
  Country: None (occurrence: None)
  Receive Date: 20050113
  Receipt Date: 20050107
  Transmission Date: 20050727
  Serious: Yes (Life-Threatening)
  Sender: FDA-Public Use
  Company Number: 2005AP00139

PATIENT
  Age: 62 Year
  Sex: Female

DRUGS (4)
  1. OMEPRAL [Suspect]
     Dosage: 20 MG DAILY PO
     Route: 048
     Dates: start: 20040101, end: 20050105
  2. GASMOTIN [Concomitant]
  3. FERROMIA [Concomitant]
  4. DEPAS [Concomitant]

REACTIONS (1)
  - HEPATITIS FULMINANT [None]
